FAERS Safety Report 9456208 (Version 1)
Quarter: 2013Q3

REPORT INFORMATION
  Report Type: Spontaneous
  Country: US (occurrence: None)
  Receive Date: 20130812
  Receipt Date: 20130812
  Transmission Date: 20140515
  Serious: Yes (Other)
  Sender: FDA-Public Use
  Company Number: None

PATIENT
  Age: 44 Year
  Sex: Female
  Weight: 71.67 kg

DRUGS (1)
  1. GAMMAGARD [Suspect]
     Indication: MYASTHENIA GRAVIS
     Route: 042
     Dates: start: 20130802, end: 20130804

REACTIONS (10)
  - Headache [None]
  - Pruritus [None]
  - Migraine [None]
  - Dizziness [None]
  - Fatigue [None]
  - Chromaturia [None]
  - Nausea [None]
  - Vomiting [None]
  - Photophobia [None]
  - Product quality issue [None]
